FAERS Safety Report 12511300 (Version 1)
Quarter: 2016Q2

REPORT INFORMATION
  Report Type: Spontaneous
  Country: DE (occurrence: DE)
  Receive Date: 20160629
  Receipt Date: 20160629
  Transmission Date: 20160815
  Serious: Yes (Other)
  Sender: FDA-Public Use
  Company Number: DE-SUN PHARMACEUTICAL INDUSTRIES LTD-2016RR-119281

PATIENT
  Age: 32 Year
  Sex: Female
  Weight: 2.47 kg

DRUGS (5)
  1. PAROXETINE. [Suspect]
     Active Substance: PAROXETINE
     Indication: SCHIZOPHRENIA
     Dosage: 40 MG, DAILY
     Route: 048
     Dates: start: 20141222, end: 20150302
  2. SERTRALINE [Suspect]
     Active Substance: SERTRALINE HYDROCHLORIDE
     Indication: SCHIZOPHRENIA
     Dosage: 50 MG, DAILY
     Route: 048
     Dates: start: 20150303, end: 20150908
  3. VITAVERLAN [Concomitant]
     Indication: PROPHYLAXIS OF NEURAL TUBE DEFECT
     Route: 048
  4. OLANZAPINE. [Suspect]
     Active Substance: OLANZAPINE
     Indication: SCHIZOPHRENIA
     Dosage: 10 MG, DAILY
     Route: 048
     Dates: start: 20141222, end: 20150908
  5. RISPERIDONE. [Suspect]
     Active Substance: RISPERIDONE
     Indication: SCHIZOPHRENIA
     Dosage: 1 MG, DAILY
     Route: 048
     Dates: start: 20141222, end: 20150908

REACTIONS (1)
  - Gestational diabetes [Recovered/Resolved]
